FAERS Safety Report 5910802-8 (Version None)
Quarter: 2008Q4

REPORT INFORMATION
  Report Type: 
  Country: None (occurrence: None)
  Receive Date: 20081007
  Receipt Date: 20080514
  Transmission Date: 20090506
  Serious: No
  Sender: FDA-Public Use
  Company Number: US-ASTRAZENECA-2008UW09941

PATIENT
  Age: 55 Year
  Sex: Female
  Weight: 70.3 kg

DRUGS (4)
  1. ARIMIDEX [Suspect]
     Indication: BREAST CANCER
     Route: 048
     Dates: start: 20080422
  2. ZITHROMAX [Concomitant]
  3. ATUSS DS [Concomitant]
  4. PREDNISONE [Concomitant]

REACTIONS (2)
  - COUGH [None]
  - NASAL CONGESTION [None]
